FAERS Safety Report 7305291-5 (Version None)
Quarter: 2011Q1

REPORT INFORMATION
  Report Type: 
  Country: None (occurrence: None)
  Receive Date: 20110222
  Receipt Date: 20110215
  Transmission Date: 20110831
  Serious: Yes (Other)
  Sender: FDA-Public Use
  Company Number: DE-PFIZER INC-2011033878

PATIENT
  Age: 61 Year
  Sex: Female
  Weight: 76.7 kg

DRUGS (9)
  1. SOMATROPIN [Suspect]
     Indication: HYPOPITUITARISM
     Dosage: 0.2 MG, 1X/DAY
     Dates: start: 20050607, end: 20110202
  2. FURORESE [Concomitant]
     Indication: OEDEMA
     Dosage: 40 MG/DAY
     Dates: start: 20061010
  3. HYDROCORTISONE [Concomitant]
     Indication: ADRENAL INSUFFICIENCY
     Dosage: 15 MG/DAY
     Dates: start: 20000721
  4. METOPROLOL [Concomitant]
     Indication: ESSENTIAL HYPERTENSION
     Dosage: 200 MG/DAY
     Dates: start: 20031029
  5. CATAPRESAN [Concomitant]
     Indication: ESSENTIAL HYPERTENSION
     Dosage: 75 MG/DAY
     Dates: start: 20061010
  6. LEVOTHYROXINE [Concomitant]
     Indication: PRIMARY HYPOTHYROIDISM
     Dosage: 50 UG/DAY
     Dates: start: 20050607
  7. ACETYLSALICYLIC ACID [Concomitant]
     Indication: ESSENTIAL HYPERTENSION
     Dosage: 100 MG/DAY
     Dates: start: 20031029
  8. ESTRIFAM [Concomitant]
     Indication: HYPOGONADISM FEMALE
     Dosage: 2 MG, 2X/DAY
     Dates: start: 20061010
  9. AMLODIPINE [Concomitant]
     Indication: ESSENTIAL HYPERTENSION
     Dosage: 2.5 MG/DAY
     Dates: start: 20060307

REACTIONS (1)
  - PITUITARY TUMOUR BENIGN [None]
